FAERS Safety Report 8391298-6 (Version None)
Quarter: 2012Q2

REPORT INFORMATION
  Report Type: 
  Country: None (occurrence: None)
  Receive Date: 20120529
  Receipt Date: 20120202
  Transmission Date: 20120825
  Serious: No
  Sender: FDA-Public Use
  Company Number: US-ABBOTT-12P-163-0901678-00

PATIENT
  Sex: Female
  Weight: 54.48 kg

DRUGS (3)
  1. SEROQUEL [Concomitant]
     Indication: HORMONE LEVEL ABNORMAL
  2. SEROQUEL [Concomitant]
     Indication: DEPRESSION
  3. ZEMPLAR [Suspect]
     Indication: HYPERPARATHYROIDISM
     Route: 048
     Dates: start: 20080101, end: 20111101

REACTIONS (1)
  - BLOOD CALCIUM INCREASED [None]
